FAERS Safety Report 9003530 (Version 1)
Quarter: 2013Q1

REPORT INFORMATION
  Report Type: Spontaneous
  Country: NO (occurrence: NO)
  Receive Date: 20130108
  Receipt Date: 20130108
  Transmission Date: 20140127
  Serious: Yes (Hospitalization, Other)
  Sender: FDA-Public Use
  Company Number: NO-ELI_LILLY_AND_COMPANY-NO201212004159

PATIENT
  Sex: Male

DRUGS (6)
  1. ZYPREXA [Suspect]
     Indication: PSYCHOTIC DISORDER
     Dosage: 5 MG, UNK
     Route: 048
     Dates: start: 20020420, end: 20020502
  2. ZYPREXA [Suspect]
     Dosage: 7.5 MG, UNK
     Dates: start: 20020503
  3. ZYPREXA [Suspect]
     Dosage: 1 DF, UNKNOWN
     Dates: end: 2004
  4. EFFEXOR [Concomitant]
     Dosage: 75 MG, UNK
  5. RISPERDAL [Concomitant]
     Dosage: 3 MG, UNK
  6. CIPRAMIL [Concomitant]

REACTIONS (8)
  - Suicidal ideation [Unknown]
  - Schizophrenia, paranoid type [Unknown]
  - Erectile dysfunction [Unknown]
  - Emotional disorder [Unknown]
  - Sensory loss [Unknown]
  - Fatigue [Unknown]
  - Drug ineffective [Unknown]
  - Intentional drug misuse [Unknown]
